FAERS Safety Report 4462438-6 (Version None)
Quarter: 2004Q3

REPORT INFORMATION
  Report Type: 
  Country: None (occurrence: None)
  Receive Date: 20040928
  Receipt Date: 20040910
  Transmission Date: 20050211
  Serious: Yes (Hospitalization)
  Sender: FDA-Public Use
  Company Number: 2004065786

PATIENT
  Age: 71 Year
  Sex: Male

DRUGS (4)
  1. AMLODIPINE [Suspect]
     Indication: ILL-DEFINED DISORDER
     Dosage: 5 MG (5 MG, 1 IN 1 D), ORAL
     Route: 048
  2. GEFITINIB (GEFITINIB) [Suspect]
     Indication: CARCINOMA
     Dosage: 250 MG (1 IN 1 D), ORAL
     Route: 048
     Dates: start: 20040624, end: 20040716
  3. AMIODRONE (AMIODARONE) [Suspect]
     Indication: ILL-DEFINED DISORDER
     Dosage: 200 MG (1 IN 1 D), ORAL
     Route: 048
  4. NITROGLYCERIN [Suspect]
     Indication: ILL-DEFINED DISORDER
     Dosage: 15 MG (1 IN 1 D), TRANSDERMAL
     Route: 062

REACTIONS (2)
  - DERMATITIS ACNEIFORM [None]
  - HAEMOPTYSIS [None]
